FAERS Safety Report 23072691 (Version 8)
Quarter: 2024Q2

REPORT INFORMATION
  Report Type: Spontaneous
  Country: US (occurrence: US)
  Receive Date: 20231017
  Receipt Date: 20240503
  Transmission Date: 20240716
  Serious: No
  Sender: FDA-Public Use
  Company Number: US-GLAXOSMITHKLINE-US2023AMR138877

PATIENT
  Sex: Female

DRUGS (2)
  1. ZEJULA [Suspect]
     Active Substance: NIRAPARIB
     Indication: Product used for unknown indication
     Dosage: 200 MG, QD
  2. POISON IVY [Suspect]
     Active Substance: TOXICODENDRON RADICANS LEAF
     Indication: Rash
     Dosage: UNK

REACTIONS (10)
  - Rash [Recovered/Resolved]
  - Pruritus [Unknown]
  - Blood glucose increased [Unknown]
  - Muscle spasms [Unknown]
  - Paraesthesia [Unknown]
  - Nausea [Not Recovered/Not Resolved]
  - Constipation [Not Recovered/Not Resolved]
  - Red blood cell count decreased [Unknown]
  - Myalgia [Unknown]
  - Product dose omission issue [Unknown]
